FAERS Safety Report 5191463-5 (Version None)
Quarter: 2006Q4

REPORT INFORMATION
  Report Type: 
  Country: None (occurrence: None)
  Receive Date: 20061219
  Receipt Date: 20061208
  Transmission Date: 20070319
  Serious: Yes (Hospitalization, Disabling)
  Sender: FDA-Public Use
  Company Number: GXBR2006US02071

PATIENT
  Age: 51 Year
  Sex: Female
  Weight: 75.3 kg

DRUGS (1)
  1. BROMERGON (NGX)(BROMOCRIPTINE) TABLET [Suspect]
     Indication: BRAIN TUMOUR OPERATION
     Dosage: 2.5 MG, QHS, ORAL
     Route: 048

REACTIONS (2)
  - CEREBROVASCULAR ACCIDENT [None]
  - HEMIPLEGIA [None]
